FAERS Safety Report 16359210 (Version 2)
Quarter: 2020Q1

REPORT INFORMATION
  Report Type: Spontaneous
  Country: US (occurrence: US)
  Receive Date: 20190527
  Receipt Date: 20200318
  Transmission Date: 20200409
  Serious: No
  Sender: FDA-Public Use
  Company Number: US-SA-2019SA140649

PATIENT
  Age: 65 Year
  Sex: Female

DRUGS (1)
  1. DUPIXENT [Suspect]
     Active Substance: DUPILUMAB
     Dosage: 300 MG, QOW
     Dates: start: 201704

REACTIONS (5)
  - Product use issue [Unknown]
  - Anxiety [Unknown]
  - Oral herpes [Unknown]
  - Injection site discolouration [Recovered/Resolved]
  - Pruritus [Unknown]
